FAERS Safety Report 8953025 (Version 2)
Quarter: 2012Q4

REPORT INFORMATION
  Report Type: 
  Country: JP (occurrence: JP)
  Receive Date: 20121205
  Receipt Date: 20121210
  Transmission Date: 20130627
  Serious: Yes (Hospitalization, Other)
  Sender: FDA-Public Use
  Company Number: JP-PFIZER INC-2012305233

PATIENT
  Age: 70 Year
  Sex: Female

DRUGS (9)
  1. LYRICA [Suspect]
     Indication: SCIATICA
     Dosage: 150 mg, 1x/day
     Route: 048
     Dates: start: 20121130, end: 20121203
  2. PREDNISOLONE [Concomitant]
     Dosage: UNK
  3. INFREE [Concomitant]
     Dosage: UNK
  4. SELBEX [Concomitant]
     Dosage: UNK
  5. TERNELIN [Concomitant]
     Dosage: UNK
  6. RHEUMATREX [Concomitant]
     Dosage: UNK
  7. FOLIAMIN [Concomitant]
     Dosage: UNK
  8. EVISTA [Concomitant]
     Dosage: UNK
  9. TAKEPRON [Concomitant]
     Dosage: UNK

REACTIONS (3)
  - Sciatica [Unknown]
  - Dysstasia [Unknown]
  - Dizziness [Unknown]
